FAERS Safety Report 8510542-5 (Version None)
Quarter: 2012Q3

REPORT INFORMATION
  Report Type: 
  Country: None (occurrence: None)
  Receive Date: 20120716
  Receipt Date: 20120710
  Transmission Date: 20120928
  Serious: Yes (Other)
  Sender: FDA-Public Use
  Company Number: US-AMGEN-USASP2012042686

PATIENT
  Age: 47 Year
  Sex: Female

DRUGS (4)
  1. ENBREL [Suspect]
     Indication: SYSTEMIC LUPUS ERYTHEMATOSUS
  2. ENBREL [Suspect]
     Indication: MIXED CONNECTIVE TISSUE DISEASE
  3. ENBREL [Suspect]
     Indication: RHEUMATOID ARTHRITIS
     Dosage: 50 MG, QWK
     Dates: start: 20120101
  4. TREXALL [Concomitant]
     Dosage: 1 MG, UNK
     Dates: start: 20110701

REACTIONS (14)
  - SWOLLEN TONGUE [None]
  - ALOPECIA [None]
  - ARTHRALGIA [None]
  - EAR INFECTION [None]
  - JOINT SWELLING [None]
  - INJECTION SITE PAIN [None]
  - BLISTER [None]
  - GASTROINTESTINAL INFLAMMATION [None]
  - MASS [None]
  - OEDEMA PERIPHERAL [None]
  - INJECTION SITE REACTION [None]
  - RASH [None]
  - OVARIAN CYST [None]
  - PAIN IN EXTREMITY [None]
